FAERS Safety Report 5740110-X (Version None)
Quarter: 2008Q2

REPORT INFORMATION
  Report Type: 
  Country: None (occurrence: None)
  Receive Date: 20080516
  Receipt Date: 20080514
  Transmission Date: 20081010
  Serious: Yes (Other)
  Sender: FDA-Public Use
  Company Number: NSADSS2001026705

PATIENT
  Age: 18 Year
  Sex: Male

DRUGS (3)
  1. REMICADE [Suspect]
     Route: 041
  2. REMICADE [Suspect]
     Indication: CROHN'S DISEASE
     Route: 041
  3. IMURAN [Concomitant]

REACTIONS (1)
  - HEPATIC NEOPLASM MALIGNANT [None]
